FAERS Safety Report 25093869 (Version 1)
Quarter: 2025Q1

REPORT INFORMATION
  Report Type: Report from Study
  Country: ZA (occurrence: ZA)
  Receive Date: 20250319
  Receipt Date: 20250319
  Transmission Date: 20250409
  Serious: Yes (Other)
  Sender: ALEXION PHARMACEUTICALS
  Company Number: ZA-AstraZeneca-CH-00826636A

PATIENT
  Age: 67 Year

DRUGS (2)
  1. DAPAGLIFLOZIN [Suspect]
     Active Substance: DAPAGLIFLOZIN
     Indication: Diabetes mellitus
  2. Stilpane [Concomitant]
     Indication: Pain

REACTIONS (3)
  - Cerebrovascular accident [Unknown]
  - Mental disorder [Unknown]
  - Malaise [Unknown]
